FAERS Safety Report 7078719-6 (Version None)
Quarter: 2010Q4

REPORT INFORMATION
  Report Type: 
  Country: None (occurrence: None)
  Receive Date: 20101101
  Receipt Date: 20101101
  Transmission Date: 20110411
  Serious: Yes (Hospitalization)
  Sender: FDA-Public Use
  Company Number: None

PATIENT
  Age: 28 Year
  Sex: Male
  Weight: 97.977 kg

DRUGS (3)
  1. DOXYCYCLINE [Suspect]
     Indication: INFECTED CYST
     Dosage: 100MG BID PO
     Route: 048
     Dates: start: 20091222, end: 20100129
  2. DOXYCYCLINE [Suspect]
     Indication: STAPHYLOCOCCAL INFECTION
     Dosage: 100MG BID PO
     Route: 048
     Dates: start: 20091222, end: 20100129
  3. CARBAMAZEPINE [Suspect]
     Indication: CONVULSION
     Dosage: 200MG TID PO  AT LEAST 3 YEARS
     Route: 048

REACTIONS (2)
  - GRAND MAL CONVULSION [None]
  - TREATMENT NONCOMPLIANCE [None]
